FAERS Safety Report 11993308 (Version 1)
Quarter: 2016Q1

REPORT INFORMATION
  Report Type: Spontaneous
  Country: MX (occurrence: MX)
  Receive Date: 20160203
  Receipt Date: 20160203
  Transmission Date: 20160526
  Serious: Yes (Other)
  Sender: FDA-Public Use
  Company Number: MX-ROCHE-1703232

PATIENT
  Age: 76 Year
  Sex: Female
  Weight: 70 kg

DRUGS (2)
  1. OBRYDEX [Concomitant]
     Dosage: DROPS
     Route: 047
     Dates: start: 20160125, end: 20160125
  2. AVASTIN [Suspect]
     Active Substance: BEVACIZUMAB
     Indication: NEOVASCULAR AGE-RELATED MACULAR DEGENERATION
     Dosage: 100 MG/4ML, SINGLE DOSE
     Route: 047
     Dates: start: 20160125, end: 20160125

REACTIONS (3)
  - Eye pain [Unknown]
  - Visual acuity reduced [Unknown]
  - Off label use [Unknown]

NARRATIVE: CASE EVENT DATE: 20160125
